FAERS Safety Report 4580525-9 (Version None)
Quarter: 2005Q1

REPORT INFORMATION
  Report Type: 
  Country: None (occurrence: None)
  Receive Date: 20050214
  Receipt Date: 20040212
  Transmission Date: 20050727
  Serious: No
  Sender: FDA-Public Use
  Company Number: US-GLAXOSMITHKLINE-A0498203A

PATIENT
  Age: 28 Year
  Sex: Female

DRUGS (3)
  1. LAMICTAL [Suspect]
     Indication: BIPOLAR DISORDER
     Dosage: 25MG ALTERNATE DAYS
     Route: 048
  2. LITHIUM [Suspect]
     Indication: ILL-DEFINED DISORDER
  3. DEPAKOTE [Concomitant]
     Indication: ILL-DEFINED DISORDER

REACTIONS (4)
  - ASTHENIA [None]
  - DRUG LEVEL FLUCTUATING [None]
  - NAUSEA [None]
  - TREMOR [None]
